FAERS Safety Report 4703239-0 (Version None)
Quarter: 2005Q2

REPORT INFORMATION
  Report Type: 
  Country: None (occurrence: None)
  Receive Date: 20050629
  Receipt Date: 20050620
  Transmission Date: 20051028
  Serious: Yes (Other)
  Sender: FDA-Public Use
  Company Number: 200512142FR

PATIENT
  Age: 59 Year
  Sex: Male

DRUGS (7)
  1. LANTUS [Suspect]
     Indication: INSULIN-REQUIRING TYPE II DIABETES MELLITUS
     Route: 058
     Dates: start: 20030701
  2. GLUCOPHAGE [Concomitant]
     Indication: INSULIN-REQUIRING TYPE II DIABETES MELLITUS
     Route: 048
     Dates: start: 20030101
  3. NOVONORM [Concomitant]
     Indication: INSULIN-REQUIRING TYPE II DIABETES MELLITUS
     Route: 048
     Dates: start: 20030701
  4. TAHOR [Concomitant]
     Indication: HYPERCHOLESTEROLAEMIA
     Route: 048
  5. APROVEL [Concomitant]
     Indication: HYPERTENSION
     Route: 048
     Dates: start: 20050606
  6. ANDROGEL [Concomitant]
     Indication: HYPOGONADISM
     Route: 003
     Dates: start: 20021201
  7. CLONAZEPAM [Concomitant]
     Indication: DIABETIC NEUROPATHY
     Route: 048

REACTIONS (3)
  - ABDOMINAL DISTENSION [None]
  - CONSTIPATION [None]
  - LIPOMATOSIS [None]
